FAERS Safety Report 20797039 (Version 2)
Quarter: 2023Q1

REPORT INFORMATION
  Report Type: Spontaneous
  Country: FR (occurrence: FR)
  Receive Date: 20220506
  Receipt Date: 20230303
  Transmission Date: 20230418
  Serious: Yes (Death, Congenital Anomaly)
  Sender: FDA-Public Use
  Company Number: None

PATIENT
  Sex: Female
  Weight: 2.85 kg

DRUGS (5)
  1. GILENYA [Suspect]
     Active Substance: FINGOLIMOD HYDROCHLORIDE
     Indication: Foetal exposure during pregnancy
     Dosage: MOTHER DOSE: 0.5 MG, QD (0.5MG 2X/J)
     Route: 064
     Dates: start: 20201207, end: 20201225
  2. METHYLPREDNISOLONE HEMISUCCINATE [Suspect]
     Active Substance: METHYLPREDNISOLONE HEMISUCCINATE
     Indication: Foetal exposure during pregnancy
     Dosage: MOTHER DOSE: 1 G, QD (1G/J PENDANT 3 JOUR)
     Route: 064
  3. TOVIAZ [Suspect]
     Active Substance: FESOTERODINE FUMARATE
     Indication: Foetal exposure during pregnancy
     Dosage: UNK
     Route: 064
  4. TYSABRI [Suspect]
     Active Substance: NATALIZUMAB
     Indication: Foetal exposure during pregnancy
     Dosage: UNK
     Route: 064
  5. TAMSULOSIN HYDROCHLORIDE [Suspect]
     Active Substance: TAMSULOSIN HYDROCHLORIDE
     Indication: Foetal exposure during pregnancy
     Dosage: UNK
     Route: 064

REACTIONS (3)
  - Atrial septal defect [Fatal]
  - Patent ductus arteriosus [Fatal]
  - Pulmonary arterial hypertension [Fatal]

NARRATIVE: CASE EVENT DATE: 20210827
